FAERS Safety Report 8478585-8 (Version None)
Quarter: 2012Q2

REPORT INFORMATION
  Report Type: 
  Country: None (occurrence: None)
  Receive Date: 20120629
  Receipt Date: 20120615
  Transmission Date: 20120825
  Serious: Yes (Hospitalization)
  Sender: FDA-Public Use
  Company Number: DE-GILEAD-2012-0057241

PATIENT
  Age: 86 Year
  Sex: Male

DRUGS (2)
  1. PLACEBO [Suspect]
     Indication: ARRHYTHMIA PROPHYLAXIS
     Dosage: UNK
     Route: 048
     Dates: start: 20120301, end: 20120601
  2. RANOLAZINE [Suspect]
     Indication: ARRHYTHMIA PROPHYLAXIS
     Dosage: UNK
     Route: 048
     Dates: start: 20120301, end: 20120601

REACTIONS (1)
  - ATRIAL FIBRILLATION [None]
